FAERS Safety Report 7482177-7 (Version None)
Quarter: 2011Q2

REPORT INFORMATION
  Report Type: 
  Country: None (occurrence: None)
  Receive Date: 20110516
  Receipt Date: 20110509
  Transmission Date: 20111010
  Serious: No
  Sender: FDA-Public Use
  Company Number: US-PFIZER INC-2011099977

PATIENT
  Sex: Male
  Weight: 74.83 kg

DRUGS (2)
  1. CHANTIX [Suspect]
     Indication: SMOKING CESSATION THERAPY
     Dosage: UNK
     Route: 048
     Dates: start: 20100201, end: 20110228
  2. CHANTIX [Suspect]
     Dosage: UNK
     Dates: start: 20110201, end: 20110416

REACTIONS (4)
  - ABNORMAL DREAMS [None]
  - VERTIGO [None]
  - ANXIETY [None]
  - CONSTIPATION [None]
